FAERS Safety Report 7213730-3 (Version None)
Quarter: 2011Q1

REPORT INFORMATION
  Report Type: 
  Country: None (occurrence: None)
  Receive Date: 20110106
  Receipt Date: 20101228
  Transmission Date: 20110831
  Serious: Yes (Hospitalization)
  Sender: FDA-Public Use
  Company Number: FR-SANOFI-AVENTIS-2010SA078321

PATIENT
  Age: 76 Year
  Sex: Female

DRUGS (2)
  1. PLAVIX [Suspect]
     Route: 048
     Dates: end: 20101022
  2. PREVISCAN [Suspect]
     Indication: ATRIAL FIBRILLATION
     Route: 048
     Dates: end: 20101022

REACTIONS (2)
  - MELAENA [None]
  - INTERNATIONAL NORMALISED RATIO INCREASED [None]
